FAERS Safety Report 9665078 (Version 1)
Quarter: 2013Q4

REPORT INFORMATION
  Report Type: Spontaneous
  Country: US (occurrence: US)
  Receive Date: 20131101
  Receipt Date: 20131101
  Transmission Date: 20140711
  Serious: No
  Sender: FDA-Public Use
  Company Number: US-TEVA-437903USA

PATIENT
  Sex: Male
  Weight: 115.77 kg

DRUGS (1)
  1. QNASL [Suspect]
     Route: 045
     Dates: end: 20131008

REACTIONS (2)
  - Oropharyngeal pain [Not Recovered/Not Resolved]
  - Muscular weakness [Not Recovered/Not Resolved]
